FAERS Safety Report 8923775 (Version 2)
Quarter: 2012Q4

REPORT INFORMATION
  Report Type: 
  Country: US (occurrence: US)
  Receive Date: 20121126
  Receipt Date: 20121220
  Transmission Date: 20130627
  Serious: No
  Sender: FDA-Public Use
  Company Number: US-009507513-1211USA010058

PATIENT
  Sex: Female

DRUGS (1)
  1. PROVENTIL [Suspect]
     Indication: ASTHMA
     Dosage: 2 puffs

REACTIONS (4)
  - Adverse event [Unknown]
  - Malaise [Unknown]
  - Product quality issue [Unknown]
  - Drug dose omission [Unknown]
